FAERS Safety Report 23026022 (Version 1)
Quarter: 2023Q4

REPORT INFORMATION
  Report Type: Spontaneous
  Country: JP (occurrence: JP)
  Receive Date: 20231004
  Receipt Date: 20231004
  Transmission Date: 20240109
  Serious: No
  Sender: FDA-Public Use
  Company Number: JP-ALKEM LABORATORIES LIMITED-JP-ALKEM-2023-10658

PATIENT
  Age: 23 Year
  Sex: Male

DRUGS (1)
  1. SIROLIMUS [Suspect]
     Active Substance: SIROLIMUS
     Indication: Malformation venous
     Dosage: 5 GRAM, BID (GEL PER 150?CM2 WAS APPLIED TO THE LESIONS TWICE DAILY)
     Route: 061

REACTIONS (1)
  - Therapy non-responder [Unknown]
